FAERS Safety Report 6580388-6 (Version None)
Quarter: 2010Q1

REPORT INFORMATION
  Report Type: 
  Country: None (occurrence: None)
  Receive Date: 20100212
  Receipt Date: 20100202
  Transmission Date: 20100710
  Serious: Yes (Other)
  Sender: FDA-Public Use
  Company Number: PHHY2009JP27872

PATIENT
  Sex: Male

DRUGS (3)
  1. AMN107 AMN+CAP [Suspect]
     Indication: CHRONIC MYELOID LEUKAEMIA
     Dosage: 200 MG/DAY
     Route: 048
     Dates: start: 20090615, end: 20090827
  2. MUCOSTA [Concomitant]
     Indication: PROPHYLAXIS
     Dosage: 300 MG, UNK
     Route: 048
     Dates: start: 20090615, end: 20090827
  3. EBASTINE [Concomitant]
     Dosage: 10 MG, UNK
     Route: 048
     Dates: start: 20090615, end: 20090827

REACTIONS (7)
  - BONE MARROW FAILURE [None]
  - CARDIOMEGALY [None]
  - ELECTROCARDIOGRAM QT PROLONGED [None]
  - ELECTROCARDIOGRAM ST SEGMENT DEPRESSION [None]
  - HAEMOGLOBIN DECREASED [None]
  - SUPRAVENTRICULAR EXTRASYSTOLES [None]
  - TACHYCARDIA [None]
